FAERS Safety Report 11299499 (Version 1)
Quarter: 2015Q3

REPORT INFORMATION
  Report Type: Spontaneous
  Country: US (occurrence: US)
  Receive Date: 20150722
  Receipt Date: 20150722
  Transmission Date: 20151125
  Serious: No
  Sender: FDA-Public Use
  Company Number: US-ELI_LILLY_AND_COMPANY-US201111001880

PATIENT
  Age: 38 Year
  Sex: Female

DRUGS (3)
  1. HUMATROPE [Suspect]
     Active Substance: SOMATROPIN
     Dosage: 0.9 MG, 6/W
     Route: 058
  2. HUMATROPE [Suspect]
     Active Substance: SOMATROPIN
     Dosage: 0.9 MG, 6/W
     Route: 058
  3. HUMATROPE [Suspect]
     Active Substance: SOMATROPIN
     Indication: GROWTH HORMONE DEFICIENCY
     Dosage: 0.7 MG, QD FOR 6 DAYS
     Dates: start: 20101223

REACTIONS (29)
  - Mental impairment [Unknown]
  - Fall [Unknown]
  - General physical health deterioration [Unknown]
  - Anxiety [Unknown]
  - Nervousness [Unknown]
  - Arthralgia [Unknown]
  - Fibromyalgia [Unknown]
  - Increased appetite [Unknown]
  - Hypoaesthesia [Unknown]
  - Weight decreased [Unknown]
  - Fatigue [Unknown]
  - Fractured coccyx [Unknown]
  - Hypokinesia [Unknown]
  - Myalgia [Unknown]
  - Back pain [Unknown]
  - Hypothyroidism [Unknown]
  - Feeling abnormal [Unknown]
  - Insomnia [Unknown]
  - Hyperaesthesia [Unknown]
  - Musculoskeletal stiffness [Unknown]
  - Muscular weakness [Unknown]
  - Limb discomfort [Unknown]
  - Memory impairment [Unknown]
  - Crying [Unknown]
  - Weight increased [Unknown]
  - Migraine [Unknown]
  - Back disorder [Unknown]
  - General physical health deterioration [Unknown]
  - Sensory disturbance [Unknown]

NARRATIVE: CASE EVENT DATE: 201209
